FAERS Safety Report 6274790-X (Version None)
Quarter: 2009Q3

REPORT INFORMATION
  Report Type: 
  Country: None (occurrence: None)
  Receive Date: 20090721
  Receipt Date: 20070810
  Transmission Date: 20100115
  Serious: Yes (Other)
  Sender: FDA-Public Use
  Company Number: US-ASTRAZENECA-2006UW07942

PATIENT
  Age: 600 Month
  Sex: Female
  Weight: 99.8 kg

DRUGS (18)
  1. SEROQUEL [Suspect]
     Indication: BIPOLAR DISORDER
     Dosage: 25 TO 800 MG, FLUCTUATING
     Route: 048
     Dates: start: 20030216
  2. SEROQUEL [Suspect]
     Indication: INSOMNIA
     Dosage: 25 TO 800 MG, FLUCTUATING
     Route: 048
     Dates: start: 20030216
  3. SEROQUEL [Suspect]
     Indication: SLEEP DISORDER
     Dosage: 25 TO 800 MG, FLUCTUATING
     Route: 048
     Dates: start: 20030216
  4. SEROQUEL [Suspect]
     Route: 048
     Dates: start: 20030101, end: 20060101
  5. SEROQUEL [Suspect]
     Route: 048
     Dates: start: 20030101, end: 20060101
  6. SEROQUEL [Suspect]
     Route: 048
     Dates: start: 20030101, end: 20060101
  7. SEROQUEL [Suspect]
     Dosage: 400 MG AT NIGHT
     Route: 048
     Dates: start: 20040101
  8. SEROQUEL [Suspect]
     Dosage: 400 MG AT NIGHT
     Route: 048
     Dates: start: 20040101
  9. SEROQUEL [Suspect]
     Dosage: 400 MG AT NIGHT
     Route: 048
     Dates: start: 20040101
  10. RISPERDAL [Concomitant]
     Dates: start: 20000101, end: 20020101
  11. DEPAKOTE [Concomitant]
     Indication: MANIA
     Dates: start: 20000101, end: 20060101
  12. DEPAKOTE [Concomitant]
     Indication: CONVULSION
     Dates: start: 20000101, end: 20060101
  13. DEPAKOTE [Concomitant]
     Dosage: 250 TO 1500 MG
     Route: 048
     Dates: start: 20020520
  14. DEPAKOTE [Concomitant]
     Dosage: 250 TO 1500 MG
     Route: 048
     Dates: start: 20020520
  15. ZOLOFT [Concomitant]
     Indication: DEPRESSION
     Dosage: 100 TO 200 MG
     Route: 048
     Dates: start: 19980717
  16. TRILEPTAL [Concomitant]
     Dates: start: 20030813
  17. ATENOLOL [Concomitant]
     Dosage: 25 TO 50 MG
     Route: 048
     Dates: start: 20031111
  18. LOVASTATIN [Concomitant]
     Dates: start: 20030910

REACTIONS (6)
  - ARTHRALGIA [None]
  - BACK PAIN [None]
  - DIABETES MELLITUS [None]
  - DIABETES MELLITUS INADEQUATE CONTROL [None]
  - DIABETIC NEUROPATHY [None]
  - ROAD TRAFFIC ACCIDENT [None]
